FAERS Safety Report 24740251 (Version 2)
Quarter: 2025Q1

REPORT INFORMATION
  Report Type: Spontaneous
  Country: FR (occurrence: FR)
  Receive Date: 20241216
  Receipt Date: 20250207
  Transmission Date: 20250409
  Serious: Yes (Death, Hospitalization)
  Sender: ABBVIE
  Company Number: FR-ABBVIE-6046056

PATIENT
  Age: 84 Year
  Sex: Male
  Weight: 57 kg

DRUGS (2)
  1. RINVOQ [Suspect]
     Active Substance: UPADACITINIB
     Indication: Intestinal stenosis
     Dosage: LAST ADMINISTRATION DATE: TILL DEATH
     Route: 048
     Dates: start: 20240901
  2. CARBOHYDRATES\FATTY ACIDS\MINERALS\PROTEIN\VITAMINS [Concomitant]
     Active Substance: CARBOHYDRATES\FATTY ACIDS\MINERALS\PROTEIN\VITAMINS
     Indication: Product used for unknown indication
     Route: 048

REACTIONS (6)
  - Subileus [Fatal]
  - Enterocolitis [Recovering/Resolving]
  - Intestinal stenosis [Recovering/Resolving]
  - Hyperkalaemia [Unknown]
  - Acidosis [Unknown]
  - Thyroiditis [Unknown]

NARRATIVE: CASE EVENT DATE: 20240701
